FAERS Safety Report 8116854-1 (Version None)
Quarter: 2012Q1

REPORT INFORMATION
  Report Type: 
  Country: None (occurrence: None)
  Receive Date: 20120206
  Receipt Date: 20120202
  Transmission Date: 20120608
  Serious: Yes (Death)
  Sender: FDA-Public Use
  Company Number: PHHY2012CA008280

PATIENT
  Sex: Male

DRUGS (9)
  1. PRAVACHOL [Concomitant]
     Dosage: UNK UKN, UNK
  2. CLOZARIL [Suspect]
     Indication: BIPOLAR DISORDER
     Dosage: 100 MG, TID
     Route: 048
     Dates: start: 20100101
  3. CALCIUM CARBONATE [Concomitant]
     Dosage: UNK UKN, UNK
  4. VITAMIN D [Concomitant]
     Dosage: UNK UKN, UNK
  5. VALPROIC ACID [Concomitant]
     Dosage: UNK UKN, UNK
  6. ASPIRIN [Concomitant]
     Dosage: UNK UKN, UNK
  7. LACTULOSE [Concomitant]
     Dosage: UNK UKN, UNK
  8. TEMAZEPAM [Concomitant]
     Dosage: UNK UKN, UNK
  9. TEGRETOL [Concomitant]
     Dosage: UNK UKN, UNK

REACTIONS (1)
  - CARDIAC ARREST [None]
